FAERS Safety Report 5895610-9 (Version None)
Quarter: 2008Q3

REPORT INFORMATION
  Report Type: 
  Country: None (occurrence: None)
  Receive Date: 20080924
  Receipt Date: 20070510
  Transmission Date: 20090109
  Serious: Yes (Other)
  Sender: FDA-Public Use
  Company Number: US-ASTRAZENECA-2006UW11527

PATIENT
  Age: 45 Year
  Sex: Female

DRUGS (7)
  1. SEROQUEL [Suspect]
     Indication: DEPRESSION
     Dosage: 200 MG TO 300 MG
     Route: 048
     Dates: start: 20040101, end: 20060101
  2. ZYPREXA [Suspect]
     Dates: start: 20050101, end: 20060101
  3. GEODON [Concomitant]
     Dates: start: 20050101, end: 20060101
  4. NAVANE [Concomitant]
     Dates: start: 20050101, end: 20060101
  5. TRAZODONE HCL [Concomitant]
     Dates: start: 20050101
  6. LEXAPRO [Concomitant]
     Dates: start: 20050101
  7. KLONOPIN [Concomitant]
     Dates: start: 20040101

REACTIONS (2)
  - DIABETES MELLITUS [None]
  - DIABETIC KETOACIDOSIS [None]
